FAERS Safety Report 24136798 (Version 1)
Quarter: 2024Q3

REPORT INFORMATION
  Report Type: Other
  Country: MA (occurrence: MA)
  Receive Date: 20240725
  Receipt Date: 20240725
  Transmission Date: 20241016
  Serious: Yes (Hospitalization)
  Sender: EMD SERONO INC
  Company Number: MA-Merck Healthcare KGaA-2024038895

PATIENT
  Age: 63 Year
  Sex: Female

DRUGS (2)
  1. METFORMIN [Suspect]
     Active Substance: METFORMIN HYDROCHLORIDE
     Indication: Type 2 diabetes mellitus
  2. SINTROM [Concomitant]
     Active Substance: ACENOCOUMAROL
     Indication: Atrial thrombosis

REACTIONS (3)
  - Paraparesis [Recovering/Resolving]
  - Dysarthria [Recovering/Resolving]
  - Central nervous system lesion [Unknown]
